FAERS Safety Report 10676960 (Version 4)
Quarter: 2015Q3

REPORT INFORMATION
  Report Type: Spontaneous
  Country: AR (occurrence: AR)
  Receive Date: 20141226
  Receipt Date: 20150730
  Transmission Date: 20151125
  Serious: Yes (Hospitalization, Other)
  Sender: FDA-Public Use
  Company Number: AR-PFIZER INC-2014356069

PATIENT
  Age: 52 Year
  Sex: Male

DRUGS (1)
  1. SUTENT [Suspect]
     Active Substance: SUNITINIB MALATE
     Indication: METASTATIC RENAL CELL CARCINOMA
     Dosage: 50 MG, CYCLIC (4/2)
     Dates: start: 20141007, end: 201505

REACTIONS (8)
  - Diarrhoea [Recovered/Resolved]
  - Haemorrhage [Recovered/Resolved]
  - Pallor [Recovered/Resolved]
  - Renal disorder [Unknown]
  - Kidney infection [Unknown]
  - Yellow skin [Recovered/Resolved]
  - Renal cyst [Recovered/Resolved]
  - Malaise [Recovered/Resolved]
